FAERS Safety Report 19879550 (Version 4)
Quarter: 2022Q1

REPORT INFORMATION
  Report Type: Report from Study
  Country: DE (occurrence: DE)
  Receive Date: 20210924
  Receipt Date: 20220113
  Transmission Date: 20220424
  Serious: Yes (Hospitalization, Other)
  Sender: FDA-Public Use
  Company Number: DE-BOEHRINGERINGELHEIM-2021-BI-094671

PATIENT
  Age: 61 Year
  Sex: Female
  Weight: 68 kg

DRUGS (3)
  1. DOCETAXEL [Suspect]
     Active Substance: DOCETAXEL
     Indication: Lung adenocarcinoma
     Dosage: FORM OF ADMIN.: LIQUID; 75 MG / M2 BSA
     Route: 065
     Dates: start: 20210318, end: 20210408
  2. NINTEDANIB [Suspect]
     Active Substance: NINTEDANIB
     Indication: Lung adenocarcinoma
     Dosage: 200 MG
     Route: 065
     Dates: start: 20210319, end: 20210429
  3. EXFORGE [Suspect]
     Active Substance: AMLODIPINE BESYLATE\VALSARTAN
     Indication: Product used for unknown indication
     Dosage: 160 MG
     Route: 065
     Dates: end: 20210330

REACTIONS (7)
  - Nausea [Unknown]
  - Dermatitis acneiform [Recovered/Resolved]
  - Drug-induced liver injury [Recovered/Resolved]
  - General physical health deterioration [Not Recovered/Not Resolved]
  - Constipation [Recovered/Resolved]
  - Fatigue [Not Recovered/Not Resolved]
  - Vomiting [Not Recovered/Not Resolved]

NARRATIVE: CASE EVENT DATE: 20210322
